FAERS Safety Report 7472633-X (Version None)
Quarter: 2011Q2

REPORT INFORMATION
  Report Type: 
  Country: None (occurrence: None)
  Receive Date: 20110502
  Receipt Date: 20110128
  Transmission Date: 20111010
  Serious: Yes (Death)
  Sender: FDA-Public Use
  Company Number: DSA_44527_2010

PATIENT
  Sex: Male
  Weight: 49.8957 kg

DRUGS (3)
  1. PAXIL [Concomitant]
  2. ZYPREXA [Concomitant]
  3. XENAZINE [Suspect]
     Indication: HUNTINGTON'S DISEASE
     Dosage: (25 MG BID ORAL)
     Route: 048
     Dates: start: 20090318

REACTIONS (2)
  - DISEASE COMPLICATION [None]
  - HUNTINGTON'S DISEASE [None]
